FAERS Safety Report 5837527-1 (Version None)
Quarter: 2008Q3

REPORT INFORMATION
  Report Type: 
  Country: None (occurrence: None)
  Receive Date: 20080807
  Receipt Date: 20080730
  Transmission Date: 20090109
  Serious: Yes (Other)
  Sender: FDA-Public Use
  Company Number: FR-PFIZER INC-2008059408

PATIENT
  Sex: Female
  Weight: 70 kg

DRUGS (4)
  1. LYRICA [Suspect]
     Route: 048
     Dates: start: 20080101, end: 20080601
  2. OXYCONTIN [Concomitant]
     Route: 048
  3. ZOLOFT [Concomitant]
     Route: 048
  4. ZELITREX [Concomitant]
     Route: 048
     Dates: start: 20060101

REACTIONS (1)
  - JAUNDICE [None]
